FAERS Safety Report 5148373-9 (Version None)
Quarter: 2006Q4

REPORT INFORMATION
  Report Type: 
  Country: None (occurrence: None)
  Receive Date: 20061106
  Receipt Date: 20061023
  Transmission Date: 20070319
  Serious: Yes (Other)
  Sender: FDA-Public Use
  Company Number: 2006129778

PATIENT
  Age: 36 Year
  Sex: Female
  Weight: 95.2554 kg

DRUGS (4)
  1. CETIRIZINE HCL [Suspect]
     Indication: HYPERSENSITIVITY
     Dosage: 20 MG
  2. SUDAFED PE            (PHENYLEPHRINE) [Suspect]
  3. NASONEX [Concomitant]
  4. MONTELUKAST SODIUM [Concomitant]

REACTIONS (5)
  - DYSGEUSIA [None]
  - EYELID OEDEMA [None]
  - LIP SWELLING [None]
  - PULSE ABNORMAL [None]
  - SOMNOLENCE [None]
